FAERS Safety Report 24853699 (Version 2)
Quarter: 2025Q1

REPORT INFORMATION
  Report Type: Spontaneous
  Country: US (occurrence: US)
  Receive Date: 20250117
  Receipt Date: 20250210
  Transmission Date: 20250409
  Serious: No
  Sender: ALK-ABELLO
  Company Number: US-ALK-ABELLO A/S-2024AA004872

PATIENT

DRUGS (5)
  1. CHENOPODIUM ALBUM POLLEN [Suspect]
     Active Substance: CHENOPODIUM ALBUM POLLEN
     Indication: Product used for unknown indication
     Dates: start: 20240918
  2. PHLEUM PRATENSE POLLEN [Suspect]
     Active Substance: PHLEUM PRATENSE POLLEN
     Indication: Product used for unknown indication
     Dates: start: 20240918
  3. RUMEX ACETOSELLA POLLEN [Suspect]
     Active Substance: RUMEX ACETOSELLA POLLEN
     Indication: Product used for unknown indication
     Dates: start: 20240918
  4. OLOPATADINE [Concomitant]
     Active Substance: OLOPATADINE
     Dosage: UNK UNK, BID
  5. ZYRTEC [Concomitant]
     Active Substance: CETIRIZINE HYDROCHLORIDE

REACTIONS (2)
  - Injection site urticaria [Recovered/Resolved]
  - Injection site urticaria [Recovered/Resolved]

NARRATIVE: CASE EVENT DATE: 20241204
